FAERS Safety Report 17760862 (Version 1)
Quarter: 2020Q2

REPORT INFORMATION
  Report Type: Spontaneous
  Country: US (occurrence: US)
  Receive Date: 20200508
  Receipt Date: 20200508
  Transmission Date: 20200714
  Serious: No
  Sender: FDA-Public Use
  Company Number: US-PFIZER INC-2020183096

PATIENT
  Age: 75 Year
  Sex: Female

DRUGS (1)
  1. XELJANZ XR [Suspect]
     Active Substance: TOFACITINIB CITRATE
     Indication: RHEUMATOID ARTHRITIS
     Dosage: 11 MG, DAILY
     Route: 048
     Dates: start: 20200319

REACTIONS (7)
  - Back pain [Unknown]
  - Depression [Unknown]
  - Pain in extremity [Unknown]
  - Finger deformity [Unknown]
  - Swelling [Unknown]
  - Arthralgia [Unknown]
  - Product dose omission [Unknown]
